FAERS Safety Report 16121746 (Version 2)
Quarter: 2019Q2

REPORT INFORMATION
  Report Type: Report from Study
  Country: GB (occurrence: GB)
  Receive Date: 20190327
  Receipt Date: 20190515
  Transmission Date: 20190711
  Serious: Yes (Hospitalization, Other)
  Sender: FDA-Public Use
  Company Number: PHHY2018GB186118

PATIENT
  Sex: Male

DRUGS (1)
  1. COSENTYX [Suspect]
     Active Substance: SECUKINUMAB
     Indication: ANKYLOSING SPONDYLITIS
     Dosage: 150 MG, QMO
     Route: 058
     Dates: start: 20180524

REACTIONS (5)
  - Lower respiratory tract infection [Recovered/Resolved]
  - Malaise [Unknown]
  - Nasopharyngitis [Unknown]
  - Dizziness [Recovered/Resolved]
  - Blood pressure increased [Recovered/Resolved]
